FAERS Safety Report 4331023-9 (Version None)
Quarter: 2004Q1

REPORT INFORMATION
  Report Type: 
  Country: None (occurrence: None)
  Receive Date: 20040331
  Receipt Date: 20040319
  Transmission Date: 20041129
  Serious: Yes (Other)
  Sender: FDA-Public Use
  Company Number: 2004005100

PATIENT
  Sex: Male

DRUGS (15)
  1. NEURONTIN [Suspect]
     Indication: NEUROPATHY
     Dosage: 1500 MG (BID)
     Dates: start: 20020201
  2. ASPIRIN [Concomitant]
  3. DILTIAZEM HYDROCHLORIDE [Concomitant]
  4. FOLIC ACID [Concomitant]
  5. ATROVASTATIN [Concomitant]
  6. BUDESONIDE [Concomitant]
  7. ALBUTEROL SULFATE [Concomitant]
  8. CETIRIZINE HCL [Concomitant]
  9. MOMETASONE FUROATE [Concomitant]
  10. CYCLOBENZAPRINE HYDROCHLORIDE [Concomitant]
  11. VICODIN [Concomitant]
  12. NORTRIPTYLINE HCL [Concomitant]
  13. METAXALONE [Concomitant]
  14. RANITIDINE HYDROCHLORIDE [Concomitant]
  15. OXYCOCET (PARACETAMOL, OXYCODONE HYDROCHLORIDE) [Concomitant]

REACTIONS (1)
  - EXTRAOCULAR MUSCLE PARESIS [None]
